FAERS Safety Report 24202246 (Version 1)
Quarter: 2024Q3

REPORT INFORMATION
  Report Type: Spontaneous
  Country: CN (occurrence: None)
  Receive Date: 20240812
  Receipt Date: 20240812
  Transmission Date: 20241017
  Serious: Yes (Hospitalization, Other)
  Sender: UNICHEM
  Company Number: CN-Unichem Pharmaceuticals (USA) Inc-UCM202408-000977

PATIENT
  Age: 16 Year
  Sex: Male
  Weight: 78 kg

DRUGS (16)
  1. AMIODARONE HYDROCHLORIDE [Suspect]
     Active Substance: AMIODARONE HYDROCHLORIDE
     Indication: Atrial fibrillation
     Route: 042
  2. AMIODARONE HYDROCHLORIDE [Suspect]
     Active Substance: AMIODARONE HYDROCHLORIDE
     Dosage: 6 UG/KG/MIN
     Route: 041
  3. DOPAMINE [Concomitant]
     Active Substance: DOPAMINE HYDROCHLORIDE
     Indication: Product used for unknown indication
     Dosage: UNKNOWN
     Route: 042
  4. DOPAMINE [Concomitant]
     Active Substance: DOPAMINE HYDROCHLORIDE
     Indication: Blood pressure measurement
  5. DOPAMINE [Concomitant]
     Active Substance: DOPAMINE HYDROCHLORIDE
     Indication: Cardiac contractility decreased
  6. DOBUTAMINE [Concomitant]
     Active Substance: DOBUTAMINE HYDROCHLORIDE
     Indication: Product used for unknown indication
     Dosage: UNKNOWN
     Route: 042
  7. DOBUTAMINE [Concomitant]
     Active Substance: DOBUTAMINE HYDROCHLORIDE
     Indication: Blood pressure measurement
  8. DOBUTAMINE [Concomitant]
     Active Substance: DOBUTAMINE HYDROCHLORIDE
     Indication: Cardiac contractility decreased
  9. MEROPENEM [Concomitant]
     Active Substance: MEROPENEM
     Indication: Infection
     Dosage: IVGTT
  10. GLYCYRRHIZIN [Concomitant]
     Active Substance: GLYCYRRHIZIN
     Indication: Product used for unknown indication
     Dosage: UNKNOWN
  11. PHOSPHOLIPID [Concomitant]
     Active Substance: PHOSPHOLIPID
     Indication: Liver function test abnormal
     Dosage: UNKNOWN
  12. SACUBITRIL\VALSARTAN [Concomitant]
     Active Substance: SACUBITRIL\VALSARTAN
     Indication: Blood pressure fluctuation
  13. TRIMETAZIDINE [Concomitant]
     Active Substance: TRIMETAZIDINE
     Indication: Blood pressure fluctuation
  14. IVABRADINE [Concomitant]
     Active Substance: IVABRADINE
     Indication: Product used for unknown indication
     Route: 048
  15. TOLVAPTAN [Concomitant]
     Active Substance: TOLVAPTAN
     Indication: Product used for unknown indication
     Dosage: 10M
     Route: 048
  16. HEPARIN [Concomitant]
     Active Substance: HEPARIN SODIUM
     Indication: Product used for unknown indication
     Dosage: UNKNOWN

REACTIONS (13)
  - Pericardial effusion [Recovered/Resolved]
  - Hypertension [Recovered/Resolved]
  - Livedo reticularis [Recovered/Resolved]
  - Cholelithiasis [Unknown]
  - Cholecystitis [Unknown]
  - Hepatotoxicity [Recovered/Resolved]
  - Cardiogenic shock [Recovered/Resolved]
  - Renal failure [Recovered/Resolved]
  - Coagulopathy [Recovered/Resolved]
  - Hyperhidrosis [Recovered/Resolved]
  - Orthopnoea [Recovered/Resolved]
  - Atrioventricular block second degree [Recovered/Resolved]
  - Drug effective for unapproved indication [Unknown]
